FAERS Safety Report 5762421-4 (Version None)
Quarter: 2008Q2

REPORT INFORMATION
  Report Type: 
  Country: None (occurrence: None)
  Receive Date: 20080609
  Receipt Date: 20080529
  Transmission Date: 20081010
  Serious: Yes (Hospitalization)
  Sender: FDA-Public Use
  Company Number: US-JNJFOC-20080600179

PATIENT
  Sex: Female

DRUGS (3)
  1. ULTRAM [Suspect]
     Indication: PAIN
     Route: 048
  2. TIAZAC [Concomitant]
     Indication: HYPERTENSION
     Route: 048
  3. LORAZEPAM [Concomitant]
     Indication: ANXIETY
     Route: 048

REACTIONS (4)
  - FALL [None]
  - MUSCLE SPASMS [None]
  - PAIN IN EXTREMITY [None]
  - WEIGHT DECREASED [None]
